FAERS Safety Report 18944837 (Version 1)
Quarter: 2021Q1

REPORT INFORMATION
  Report Type: Report from Study
  Country: GB (occurrence: JP)
  Receive Date: 20210226
  Receipt Date: 20210226
  Transmission Date: 20210420
  Serious: Yes (Other)
  Sender: FDA-Public Use
  Company Number: JP-ASTELLAS-2021US006572

PATIENT
  Age: 53 Year
  Sex: Female

DRUGS (1)
  1. ERLOTINIB [Suspect]
     Active Substance: ERLOTINIB
     Indication: NON-SMALL CELL LUNG CANCER
     Dosage: 56700 MG, TOTAL DOSE (RECEIVED THE MOST RECENT DOSE OF ERLOTINIB ON 19/FEB/2019)
     Route: 048
     Dates: start: 20170705

REACTIONS (2)
  - Neutropenia [Recovered/Resolved]
  - Laryngeal haemorrhage [Recovered/Resolved]

NARRATIVE: CASE EVENT DATE: 20170816
